FAERS Safety Report 9423441 (Version 1)
Quarter: 2013Q3

REPORT INFORMATION
  Report Type: Spontaneous
  Country: US (occurrence: US)
  Receive Date: 20130726
  Receipt Date: 20130726
  Transmission Date: 20140515
  Serious: No
  Sender: FDA-Public Use
  Company Number: US-GALDERMA-US-GDP-12415275

PATIENT
  Age: 16 Year
  Sex: Female

DRUGS (1)
  1. DIFFERIN (ADAPALENE) GEL, 0.3% [Suspect]
     Indication: ACNE
     Route: 061
     Dates: start: 201210

REACTIONS (3)
  - Chemical injury [Not Recovered/Not Resolved]
  - Skin exfoliation [Not Recovered/Not Resolved]
  - Erythema [Not Recovered/Not Resolved]
